FAERS Safety Report 5043093-3 (Version None)
Quarter: 2006Q2

REPORT INFORMATION
  Report Type: 
  Country: None (occurrence: None)
  Receive Date: 20060628
  Receipt Date: 20060619
  Transmission Date: 20061013
  Serious: Yes (Hospitalization, Other)
  Sender: FDA-Public Use
  Company Number: ITWYE744719JUN06

PATIENT
  Age: 52 Year
  Sex: Male

DRUGS (6)
  1. EFFEXOR [Suspect]
     Indication: DEPRESSION
     Dosage: ORAL; OVERDOSE AOUNT 35 TABLETS DAILY ORAL
     Route: 048
     Dates: start: 20051201, end: 20051201
  2. EFFEXOR [Suspect]
     Indication: DEPRESSION
     Dosage: ORAL; OVERDOSE AOUNT 35 TABLETS DAILY ORAL
     Route: 048
     Dates: start: 20051201, end: 20060607
  3. ANTABUSE [Concomitant]
  4. NEBIVOLOL HYDROCHLORIDE (NEBIVOLOL HYDROCHLORIDE) [Concomitant]
  5. NORVASC [Concomitant]
  6. ESCITALOPRAM (ESCITALOPRAM) [Concomitant]

REACTIONS (3)
  - DRUG DEPENDENCE [None]
  - ELECTROCARDIOGRAM QT PROLONGED [None]
  - INTENTIONAL OVERDOSE [None]
